FAERS Safety Report 7314165-5 (Version None)
Quarter: 2011Q1

REPORT INFORMATION
  Report Type: 
  Country: None (occurrence: None)
  Receive Date: 20110225
  Receipt Date: 20100706
  Transmission Date: 20110831
  Serious: No
  Sender: FDA-Public Use
  Company Number: US-MYLANLABS-2010S1009206

PATIENT
  Age: 54 Year
  Sex: Male
  Weight: 103.42 kg

DRUGS (8)
  1. PRAVASTATIN [Concomitant]
  2. AMNESTEEM [Suspect]
     Indication: ACNE CONGLOBATA
     Route: 048
     Dates: start: 20100201, end: 20100301
  3. CLARAVIS [Suspect]
     Indication: ACNE CONGLOBATA
     Route: 048
     Dates: start: 20100101, end: 20100201
  4. AMNESTEEM [Suspect]
     Route: 048
     Dates: start: 20100401, end: 20100520
  5. HYDROCHLOROTHIAZIDE [Concomitant]
  6. DILTIAZEM [Concomitant]
  7. LISINOPRIL [Concomitant]
  8. AMNESTEEM [Suspect]
     Route: 048
     Dates: start: 20100301, end: 20100401

REACTIONS (2)
  - MYALGIA [None]
  - ARTHRALGIA [None]
